FAERS Safety Report 9779857 (Version 2)
Quarter: 2013Q4

REPORT INFORMATION
  Report Type: Spontaneous
  Country: US (occurrence: US)
  Receive Date: 20131223
  Receipt Date: 20131223
  Transmission Date: 20140711
  Serious: No
  Sender: FDA-Public Use
  Company Number: US-ENDO PHARMACEUTICALS INC.-ZOLP20130036

PATIENT
  Age: 71 Year
  Sex: Female

DRUGS (10)
  1. ZOLPIDEM TARTRATE TABLETS 5MG [Suspect]
     Indication: INSOMNIA
     Route: 048
     Dates: start: 20130927, end: 20130929
  2. ZOLPIDEM TARTRATE TABLETS 5MG [Suspect]
     Route: 048
     Dates: start: 20130823, end: 20130926
  3. TEMAZEPAM [Suspect]
     Indication: INSOMNIA
     Route: 048
     Dates: start: 20130927, end: 20130929
  4. ATENOLOL [Concomitant]
     Indication: HYPERTENSION
     Route: 048
  5. LOSARTAN POTASSIUM / HYDROCHLOROTHIAZIDE 100MG/25MG [Concomitant]
     Indication: HYPERTENSION
     Dosage: 100/25 MG
     Route: 048
  6. ARMOUR THYROID [Concomitant]
     Indication: THYROID DISORDER
     Route: 048
  7. SIMVASTATIN [Concomitant]
     Indication: BLOOD CHOLESTEROL INCREASED
     Route: 048
  8. METFORMIN HYDROCHLORIDE TABLETS 500MG [Concomitant]
     Indication: DIABETES MELLITUS
     Route: 048
  9. MULTIVITAMINS WITH MINERALS [Concomitant]
     Dosage: UNKNOWN
     Route: 065
  10. LATANOPROST [Concomitant]
     Dosage: UNKNOWN
     Route: 065

REACTIONS (3)
  - Drug dose omission [Unknown]
  - Memory impairment [Recovering/Resolving]
  - Drug ineffective [Unknown]
